FAERS Safety Report 20994181 (Version 1)
Quarter: 2022Q2

REPORT INFORMATION
  Report Type: Spontaneous
  Country: GB (occurrence: GB)
  Receive Date: 20220622
  Receipt Date: 20220622
  Transmission Date: 20220721
  Serious: Yes (Hospitalization)
  Sender: FDA-Public Use
  Company Number: GB-MYLANLABS-2022M1046606

PATIENT
  Sex: Female

DRUGS (28)
  1. CLOZARIL [Suspect]
     Active Substance: CLOZAPINE
     Indication: Schizophrenia
     Dosage: UNK
     Route: 048
     Dates: start: 20201027
  2. BISACODYL [Concomitant]
     Active Substance: BISACODYL
     Dosage: 10 MILLIGRAM, PM (10 MG ORAL AT NIGHT (21:00))
     Route: 048
  3. CLOPIDOGREL [Concomitant]
     Active Substance: CLOPIDOGREL BISULFATE
     Dosage: 75 MILLIGRAM, AM (75 MG ORAL IN THE MORNING (09:00))
     Route: 048
  4. CHOLECALCIFEROL [Concomitant]
     Active Substance: CHOLECALCIFEROL
     Dosage: UNK, AM (1000 UNITS ORAL IN THE MORNING (09:00))
     Route: 048
  5. DIAZEPAM [Concomitant]
     Active Substance: DIAZEPAM
     Indication: Psychotic disorder
     Dosage: 2 MILLIGRAM, TID (2 MG ORAL THREE TIMES DAILY (09:00, 13:00, 21:00) )
     Route: 048
  6. DOCUSATE SODIUM [Concomitant]
     Active Substance: DOCUSATE SODIUM
     Dosage: 200 MILLIGRAM, BID (200 MG ORAL TWICE DAILY ((09:00, 21:00))
     Route: 048
  7. FERROUS SULFATE [Concomitant]
     Active Substance: FERROUS SULFATE
     Dosage: 200 MILLIGRAM (200 MG ORAL AT TEA TIME (17:00))
     Route: 048
  8. FLUDROCORTISONE ACETATE [Concomitant]
     Active Substance: FLUDROCORTISONE ACETATE
     Dosage: 150 MICROGRAM, AM (150 MICROGRAM ORAL IN THE MORNING (9:00))
     Route: 048
  9. FOLIC ACID\IRON\MINERALS\VITAMINS [Concomitant]
     Active Substance: FOLIC ACID\IRON\MINERALS\VITAMINS
     Dosage: 1 DOSAGE FORM, AM (1 CAPSULE ORAL IN THE MORNING (09:00))
     Route: 048
  10. HYDROCORTISONE [Concomitant]
     Active Substance: HYDROCORTISONE
     Indication: Adrenocortical insufficiency acute
     Dosage: 100 MILLIGRAM, PRN (100 MG INTRAMUSCULAR PRN (17:00) MINIMUM DOSAGE INTERVAL 6 HOURS UP )
     Route: 030
  11. HYDROCORTISONE [Concomitant]
     Active Substance: HYDROCORTISONE
     Dosage: 10 MILLIGRAM, AM 10 MG ORAL IN THE MORNING (09:00)
     Route: 048
  12. HYDROCORTISONE [Concomitant]
     Active Substance: HYDROCORTISONE
     Dosage: 5 MILLIGRAM (5 MG ORAL AT MIDDAY (12:00))
     Route: 048
  13. HYDROCORTISONE [Concomitant]
     Active Substance: HYDROCORTISONE
     Dosage: 5 MILLIGRAM (5 MG ORAL AT TEA TIME (17:00))
     Route: 048
  14. HYPROMELLOSES [Concomitant]
     Active Substance: HYPROMELLOSES
     Dosage: 1 GTT DROPS, QID (1 EYE DROP LEFT EYE FOUR TIMES DAILY (09:00, 13:00, 17:00, 21.00) )
  15. LANSOPRAZOLE [Concomitant]
     Active Substance: LANSOPRAZOLE
     Dosage: 15 MILLIGRAM, AM, 15 MG ORAL IN THE MORNING (09:00)
     Route: 048
  16. LEVOTHYROXINE SODIUM [Concomitant]
     Active Substance: LEVOTHYROXINE SODIUM
     Indication: Hypothyroidism
     Dosage: 100 MICROGRAM, AM (100 MICROGRAM ORAL IN THE MORNING (09:00))
     Route: 048
  17. LEVOTHYROXINE SODIUM [Concomitant]
     Active Substance: LEVOTHYROXINE SODIUM
     Dosage: 25 MICROGRAM, AM (25 MICROGRAM ORAL IN THE MORNING (09:00))
     Route: 048
  18. POLYETHYLENE GLYCOL 3350 [Concomitant]
     Active Substance: POLYETHYLENE GLYCOL 3350
     Dosage: 1 DOSAGE FORM, AM (1 SACHETS ORAL IN THE MORNING (09:00))
     Route: 048
  19. BENSERAZIDE HYDROCHLORIDE\LEVODOPA [Concomitant]
     Active Substance: BENSERAZIDE HYDROCHLORIDE\LEVODOPA
     Dosage: 1 DOSAGE FORM, BID (1 CAPSULE ORAL TWICE DAILY (09:00, 21:00))
     Route: 048
  20. MIRTAZAPINE [Concomitant]
     Active Substance: MIRTAZAPINE
     Indication: Depression
     Dosage: 30 MILLIGRAM, PM 30 MG ORAL AT NIGHT (22:00)
     Route: 048
  21. SIMVASTATIN [Concomitant]
     Active Substance: SIMVASTATIN
     Dosage: 20 MILLIGRAM, PM (20 MG ORAL AT NIGHT )
     Route: 048
  22. CLOZAPINE [Concomitant]
     Active Substance: CLOZAPINE
     Indication: Psychotic disorder
     Dosage: 37.5 MILLIGRAM, AM (37.5 MG ORAL IN THE MORNING (09:00))
     Route: 048
  23. CLOZAPINE [Concomitant]
     Active Substance: CLOZAPINE
     Dosage: 50 MILLIGRAM, PM (50 MG ORAL AT NIGHT (21:00) )
     Route: 048
  24. INSULIN HUMAN [Concomitant]
     Active Substance: INSULIN HUMAN
     Dosage: 30 INTERNATIONAL UNIT, AM (30 UNITS SUBCUTANEOUS IN THE MORNING )
     Route: 058
  25. INSULIN HUMAN [Concomitant]
     Active Substance: INSULIN HUMAN
     Dosage: 12 INTERNATIONAL UNIT (12 UNITS SUBCUTANEOUS AT TEA TIME (17:00) )
     Route: 058
  26. GLUCAGON [Concomitant]
     Active Substance: GLUCAGON
     Indication: Hypoglycaemia
     Dosage: 1 MILLIGRAM, PRN (1 MG IM/SC PRN)
  27. VENLAFAXINE [Concomitant]
     Active Substance: VENLAFAXINE HYDROCHLORIDE
     Indication: Depression
     Dosage: 150 MILLIGRAM, PM (150 MG ORAL AT NIGHT (21:00))
     Route: 048
  28. VENLAFAXINE [Concomitant]
     Active Substance: VENLAFAXINE HYDROCHLORIDE
     Dosage: 75 MILLIGRAM, AM (75 MG ORAL IN THE MORNING, (09:00))
     Route: 048

REACTIONS (1)
  - Hospitalisation [Unknown]

NARRATIVE: CASE EVENT DATE: 20220506
